FAERS Safety Report 13079087 (Version 1)
Quarter: 2017Q1

REPORT INFORMATION
  Report Type: Spontaneous
  Country: US (occurrence: US)
  Receive Date: 20170102
  Receipt Date: 20170102
  Transmission Date: 20170428
  Serious: No
  Sender: FDA-Public Use
  Company Number: US-ASTRAZENECA-2017SE00070

PATIENT
  Sex: Male

DRUGS (2)
  1. NEXIUM 24HR [Suspect]
     Active Substance: ESOMEPRAZOLE MAGNESIUM
     Dosage: UNK, ONCE DAILY  (BETWEEN 6 PM AND 9 PM AT NIGHT)
     Route: 048
  2. PRILOSEC [Suspect]
     Active Substance: OMEPRAZOLE MAGNESIUM
     Dosage: UNK, ONCE DAILY  (BETWEEN 6 PM AND 9 PM AT NIGHT)
     Route: 048

REACTIONS (3)
  - Product use issue [Unknown]
  - Disease recurrence [Unknown]
  - Dyspepsia [Unknown]
